FAERS Safety Report 6084596-2 (Version None)
Quarter: 2009Q1

REPORT INFORMATION
  Report Type: 
  Country: None (occurrence: None)
  Receive Date: 20090219
  Receipt Date: 20090213
  Transmission Date: 20090719
  Serious: Yes (Other)
  Sender: FDA-Public Use
  Company Number: US-B.I. PHARMACEUTICALS,INC./RIDGEFIELD-2009-BP-01941YA

PATIENT
  Age: 81 Year
  Sex: Male
  Weight: 66 kg

DRUGS (2)
  1. TAMSULOSIN HCL [Suspect]
     Indication: URINARY RETENTION
     Route: 048
     Dates: start: 20080513, end: 20080728
  2. PEPCID [Suspect]
     Indication: POSTOPERATIVE CARE
     Route: 048
     Dates: start: 20080510, end: 20080515

REACTIONS (4)
  - AGITATION [None]
  - CONFUSIONAL STATE [None]
  - HALLUCINATION [None]
  - URINARY RETENTION [None]
